FAERS Safety Report 26174823 (Version 1)
Quarter: 2025Q4

REPORT INFORMATION
  Report Type: Spontaneous
  Country: US (occurrence: US)
  Receive Date: 20251218
  Receipt Date: 20251218
  Transmission Date: 20260117
  Serious: Yes (Hospitalization)
  Sender: DOUGLAS PHARMACEUTICALS
  Company Number: US-DOUGLAS PHARMACEUTICALS US-2025DGL04658

PATIENT
  Age: 18 Year
  Sex: Male

DRUGS (2)
  1. CLOZAPINE [Suspect]
     Active Substance: CLOZAPINE
     Indication: Schizophrenia
     Dosage: 275 MG, 1X/DAY (NIGHTLY AT BEDTIME (QHS)
  2. CLOZAPINE [Suspect]
     Active Substance: CLOZAPINE
     Dosage: 25 MG (2 SCHEDULED DOSES)

REACTIONS (2)
  - Withdrawal catatonia [Recovering/Resolving]
  - Rebound psychosis [Recovering/Resolving]
